FAERS Safety Report 4693245-7 (Version None)
Quarter: 2005Q2

REPORT INFORMATION
  Report Type: 
  Country: None (occurrence: None)
  Receive Date: 20050311
  Receipt Date: 20050311
  Transmission Date: 20051028
  Serious: No
  Sender: FDA-Public Use
  Company Number: None

PATIENT
  Sex: Male

DRUGS (1)
  1. PRED FORTE [Suspect]
     Indication: EYE OPERATION
     Dosage: Q1 D/LE

REACTIONS (1)
  - CORNEAL OEDEMA [None]
